FAERS Safety Report 4311415-4 (Version None)
Quarter: 2004Q1

REPORT INFORMATION
  Report Type: 
  Country: None (occurrence: None)
  Receive Date: 20040302
  Receipt Date: 20031112
  Transmission Date: 20041129
  Serious: No
  Sender: FDA-Public Use
  Company Number: 200328379BWH

PATIENT
  Age: 54 Year
  Sex: Male

DRUGS (4)
  1. LEVITRA [Suspect]
     Indication: ERECTILE DYSFUNCTION
     Dosage: 10 MG, PRN, ORAL
     Route: 048
     Dates: start: 20031001
  2. LIPITOR [Concomitant]
  3. MAVIK [Concomitant]
  4. VIAGRA [Concomitant]

REACTIONS (2)
  - ERECTILE DYSFUNCTION [None]
  - NASAL CONGESTION [None]
